FAERS Safety Report 17642444 (Version 1)
Quarter: 2020Q2

REPORT INFORMATION
  Report Type: Spontaneous
  Country: US (occurrence: US)
  Receive Date: 20200408
  Receipt Date: 20200408
  Transmission Date: 20200713
  Serious: No
  Sender: FDA-Public Use
  Company Number: US-ALLERGAN-1934323US

PATIENT
  Age: 18 Year
  Sex: Female

DRUGS (6)
  1. MELATONIN WITH B6 [Concomitant]
     Dosage: 5/1 TABLET
     Route: 048
  2. EFFEXOR [Concomitant]
     Active Substance: VENLAFAXINE HYDROCHLORIDE
     Dosage: 150 MG
     Route: 048
  3. TRILEPTIL [Concomitant]
     Dosage: UNK
     Route: 048
  4. LILETTA [Suspect]
     Active Substance: LEVONORGESTREL
     Indication: CONTRACEPTION
     Dosage: 52 MG, SINGLE
     Route: 015
     Dates: start: 20190812, end: 20190812
  5. LAMICTAL [Concomitant]
     Active Substance: LAMOTRIGINE
     Dosage: UNK
     Route: 048
  6. ESTRADIOL. [Concomitant]
     Active Substance: ESTRADIOL
     Indication: MENORRHAGIA
     Dosage: 1 DF, QD
     Route: 048

REACTIONS (2)
  - Procedural anxiety [Unknown]
  - Procedural pain [Unknown]

NARRATIVE: CASE EVENT DATE: 20190812
